FAERS Safety Report 6519432-0 (Version None)
Quarter: 2009Q4

REPORT INFORMATION
  Report Type: 
  Country: None (occurrence: None)
  Receive Date: 20091224
  Receipt Date: 20091224
  Transmission Date: 20100525
  Serious: Yes (Life-Threatening, Hospitalization, Disabling)
  Sender: FDA-Public Use
  Company Number: None

PATIENT
  Age: 63 Year
  Sex: Male
  Weight: 56.6 kg

DRUGS (1)
  1. FONDAPARINUX SODIUM [Suspect]
     Indication: PULMONARY EMBOLISM
     Dosage: 7.5 MG EVERY DAY SQ
     Route: 058
     Dates: start: 20091006, end: 20091019

REACTIONS (1)
  - HAEMORRHAGE INTRACRANIAL [None]
